FAERS Safety Report 4817000-X (Version None)
Quarter: 2005Q4

REPORT INFORMATION
  Report Type: 
  Country: None (occurrence: None)
  Receive Date: 20051101
  Receipt Date: 20051028
  Transmission Date: 20060501
  Serious: Yes (Other)
  Sender: FDA-Public Use
  Company Number: US-GLAXOSMITHKLINE-A0580128A

PATIENT
  Age: 66 Year
  Sex: Female

DRUGS (8)
  1. PAXIL [Suspect]
     Indication: PANIC DISORDER
     Dosage: 15MG PER DAY
     Route: 048
  2. PAROXETINE HCL [Suspect]
     Indication: PANIC DISORDER
     Route: 065
  3. KLONOPIN [Concomitant]
  4. AMBIEN [Concomitant]
  5. ATIVAN [Concomitant]
  6. NORCO [Concomitant]
  7. SYNTHROID [Concomitant]
  8. ESTRADERM [Concomitant]

REACTIONS (10)
  - ABNORMAL BEHAVIOUR [None]
  - AGGRESSION [None]
  - ANXIETY [None]
  - CRYING [None]
  - EMOTIONAL DISORDER [None]
  - LOSS OF CONSCIOUSNESS [None]
  - PAIN [None]
  - PERSONALITY CHANGE [None]
  - URTICARIA [None]
  - WEIGHT INCREASED [None]
